FAERS Safety Report 23149788 (Version 2)
Quarter: 2023Q4

REPORT INFORMATION
  Report Type: Report from Study
  Country: US (occurrence: US)
  Receive Date: 20231106
  Receipt Date: 20231123
  Transmission Date: 20240109
  Serious: No
  Sender: FDA-Public Use
  Company Number: US-002147023-NVSC2023US235166

PATIENT
  Sex: Male

DRUGS (1)
  1. KESIMPTA [Suspect]
     Active Substance: OFATUMUMAB
     Indication: Relapsing multiple sclerosis
     Dosage: 200 MG, QMO
     Route: 058
     Dates: start: 20230825

REACTIONS (4)
  - Urinary tract infection [Unknown]
  - Pollakiuria [Unknown]
  - Dysuria [Unknown]
  - Dehydration [Unknown]
